FAERS Safety Report 10168733 (Version 2)
Quarter: 2014Q2

REPORT INFORMATION
  Report Type: Spontaneous
  Country: ES (occurrence: None)
  Receive Date: 20140509
  Receipt Date: 20140519
  Transmission Date: 20141212
  Serious: Yes (Other)
  Sender: FDA-Public Use
  Company Number: 7290269

PATIENT
  Sex: Female

DRUGS (1)
  1. LEVOTHYROXINE (LEVOTHYROXINE) (LEVOTHYROXINE SODIUM) [Suspect]
     Indication: HYPOTHYROIDISM
     Dosage: 100 MCG, ORAL
     Route: 048
     Dates: start: 2004

REACTIONS (6)
  - Type 2 diabetes mellitus [None]
  - Alopecia [None]
  - Temperature intolerance [None]
  - Constipation [None]
  - Abdominal discomfort [None]
  - Weight decreased [None]
